FAERS Safety Report 6616995-1 (Version None)
Quarter: 2010Q1

REPORT INFORMATION
  Report Type: 
  Country: None (occurrence: None)
  Receive Date: 20100302
  Receipt Date: 20100218
  Transmission Date: 20100710
  Serious: Yes (Hospitalization)
  Sender: FDA-Public Use
  Company Number: SPV1-2010-00262

PATIENT
  Age: 45 Year
  Sex: Male

DRUGS (1)
  1. FOSRENOL [Suspect]
     Indication: HYPERPHOSPHATAEMIA

REACTIONS (3)
  - CONSTIPATION [None]
  - INTESTINAL OBSTRUCTION [None]
  - PERITONITIS [None]
